FAERS Safety Report 22995852 (Version 2)
Quarter: 2023Q4

REPORT INFORMATION
  Report Type: Spontaneous
  Country: US (occurrence: US)
  Receive Date: 20230927
  Receipt Date: 20231006
  Transmission Date: 20240110
  Serious: Yes (Hospitalization, Other)
  Sender: FDA-Public Use
  Company Number: US-Stemline Therapeutics, Inc.-2023ST002722

PATIENT
  Age: 69 Year
  Sex: Female

DRUGS (2)
  1. ORSERDU [Suspect]
     Active Substance: ELACESTRANT
     Indication: Product used for unknown indication
     Dosage: 345 MG ONCE A DAY
     Route: 048
     Dates: start: 20230627
  2. ORSERDU [Suspect]
     Active Substance: ELACESTRANT
     Dosage: DAY TO DAY OF A DAY CYCLE.
     Route: 048
     Dates: start: 20230623, end: 20230922

REACTIONS (5)
  - Neoplasm malignant [Unknown]
  - Hospice care [Unknown]
  - Drug ineffective [Unknown]
  - Urostomy [Unknown]
  - Discontinued product administered [Unknown]

NARRATIVE: CASE EVENT DATE: 20230922
